FAERS Safety Report 9387363 (Version 1)
Quarter: 2013Q3

REPORT INFORMATION
  Report Type: Spontaneous
  Country: US (occurrence: US)
  Receive Date: 20130708
  Receipt Date: 20130708
  Transmission Date: 20140515
  Serious: Yes (Other)
  Sender: FDA-Public Use
  Company Number: US-GLAXOSMITHKLINE-A1017039A

PATIENT
  Sex: Female

DRUGS (2)
  1. POTIGA [Suspect]
     Indication: CONVULSION
     Dosage: 900MG PER DAY
     Route: 048
     Dates: start: 20130118
  2. NO CONCURRENT MEDICATION [Concomitant]

REACTIONS (1)
  - Urinary retention [Recovering/Resolving]
